FAERS Safety Report 15716521 (Version 2)
Quarter: 2018Q4

REPORT INFORMATION
  Report Type: Spontaneous
  Country: US (occurrence: US)
  Receive Date: 20181213
  Receipt Date: 20181219
  Transmission Date: 20190205
  Serious: Yes (Hospitalization)
  Sender: FDA-Public Use
  Company Number: US-HORIZON-PRO-0247-2018

PATIENT
  Age: 40 Year
  Sex: Male

DRUGS (8)
  1. CALCIUM-D 600 [Concomitant]
  2. MERALAX [Concomitant]
  3. ASPIRIN 81 [Concomitant]
     Active Substance: ASPIRIN
  4. PROTONIX [Concomitant]
     Active Substance: PANTOPRAZOLE SODIUM
  5. NORVASC [Concomitant]
     Active Substance: AMLODIPINE BESYLATE
  6. PROCYSBI [Suspect]
     Active Substance: CYSTEAMINE BITARTRATE
     Indication: AMINO ACID METABOLISM DISORDER
     Dosage: 1500 MG TWICE A DAY
     Route: 048
  7. CYCLOSPORINE. [Concomitant]
     Active Substance: CYCLOSPORINE
  8. LOVOSTATIN [Concomitant]

REACTIONS (7)
  - Syncope [Recovered/Resolved]
  - Dehydration [Recovered/Resolved]
  - Conjunctivitis [Recovered/Resolved]
  - Irritable bowel syndrome [Not Recovered/Not Resolved]
  - Amino acid level increased [Unknown]
  - White blood cell count increased [Not Recovered/Not Resolved]
  - Sepsis [Recovered/Resolved]

NARRATIVE: CASE EVENT DATE: 20181125
